FAERS Safety Report 11326810 (Version 2)
Quarter: 2015Q3

REPORT INFORMATION
  Report Type: Spontaneous
  Country: US (occurrence: US)
  Receive Date: 20150731
  Receipt Date: 20150816
  Transmission Date: 20151125
  Serious: Yes (Congenital Anomaly, Other)
  Sender: FDA-Public Use
  Company Number: US-APOTEX-2015AP008050

PATIENT

DRUGS (1)
  1. PAXIL [Suspect]
     Active Substance: PAROXETINE HYDROCHLORIDE
     Indication: DEPRESSION
     Dosage: 40 MG, UNK
     Route: 064

REACTIONS (6)
  - Heart disease congenital [Unknown]
  - Tricuspid valve incompetence [Unknown]
  - Lymphangioma [Unknown]
  - Foetal exposure during pregnancy [Unknown]
  - Cardiac murmur [Unknown]
  - Tricuspid valve prolapse [Unknown]
